FAERS Safety Report 18048140 (Version 1)
Quarter: 2020Q3

REPORT INFORMATION
  Report Type: Spontaneous
  Country: US (occurrence: US)
  Receive Date: 20200720
  Receipt Date: 20200720
  Transmission Date: 20201103
  Serious: Yes (Disabling)
  Sender: FDA-Public Use
  Company Number: None

PATIENT
  Age: 30 Year
  Sex: Male
  Weight: 85.5 kg

DRUGS (7)
  1. AMGALITY [Concomitant]
  2. B?COMPLEX VITAMIN [Concomitant]
  3. GABAPENTIN. [Concomitant]
     Active Substance: GABAPENTIN
  4. VITAMIN D3 [Concomitant]
     Active Substance: CHOLECALCIFEROL
  5. TYLENOL [Concomitant]
     Active Substance: ACETAMINOPHEN
  6. JUICE PLUS [Concomitant]
     Active Substance: DIETARY SUPPLEMENT
  7. AIMOVIG [Suspect]
     Active Substance: ERENUMAB-AOOE
     Indication: MIGRAINE
     Dates: start: 20190701, end: 20200625

REACTIONS (5)
  - Fatigue [None]
  - Sexual dysfunction [None]
  - Blood pressure increased [None]
  - Constipation [None]
  - Hot flush [None]

NARRATIVE: CASE EVENT DATE: 20200513
